FAERS Safety Report 8106335-3 (Version None)
Quarter: 2012Q1

REPORT INFORMATION
  Report Type: 
  Country: None (occurrence: None)
  Receive Date: 20120202
  Receipt Date: 20120125
  Transmission Date: 20120608
  Serious: Yes (Other)
  Sender: FDA-Public Use
  Company Number: US-JNJFOC-20120111562

PATIENT
  Sex: Female
  Weight: 124.29 kg

DRUGS (9)
  1. ABILIFY [Concomitant]
     Indication: DEPRESSION
     Route: 048
     Dates: start: 20030101
  2. FENTANYL-100 [Suspect]
     Indication: BACK PAIN
     Route: 062
     Dates: start: 20111101, end: 20120124
  3. GLIMEPIRIDE [Concomitant]
     Indication: DIABETES MELLITUS
     Route: 048
  4. SYMBICORT [Concomitant]
     Indication: CHRONIC OBSTRUCTIVE PULMONARY DISEASE
     Route: 065
  5. MORPHINE [Suspect]
     Indication: PRODUCT USED FOR UNKNOWN INDICATION
     Route: 065
  6. COMBIVENT [Concomitant]
     Indication: CHRONIC OBSTRUCTIVE PULMONARY DISEASE
     Route: 065
  7. EFFEXOR [Concomitant]
     Indication: DEPRESSION
     Route: 048
  8. LEVAQUIN [Suspect]
     Indication: INFECTION
     Route: 042
  9. LEVOTHYROXINE SODIUM [Concomitant]
     Indication: THYROIDECTOMY
     Route: 065

REACTIONS (5)
  - BLOOD GLUCOSE INCREASED [None]
  - INTENTIONAL DRUG MISUSE [None]
  - THYROID CANCER [None]
  - ACNE [None]
  - RENAL FAILURE [None]
